FAERS Safety Report 12739329 (Version 1)
Quarter: 2016Q3

REPORT INFORMATION
  Report Type: Spontaneous
  Country: US (occurrence: US)
  Receive Date: 20160913
  Receipt Date: 20160913
  Transmission Date: 20161109
  Serious: No
  Sender: FDA-Public Use
  Company Number: US-RECKITT BENCKISER HEALTHCARE INT LIMITED-RB-83645-2016

PATIENT
  Age: 83 Year
  Sex: Male

DRUGS (1)
  1. MUCINEX MAXIMUM STRENGTH [Suspect]
     Active Substance: GUAIFENESIN
     Indication: BRONCHITIS
     Dosage: 1200 MG, UNK
     Route: 065

REACTIONS (4)
  - Cough [Unknown]
  - Incorrect drug administration duration [Unknown]
  - Presyncope [Unknown]
  - Product use issue [Unknown]

NARRATIVE: CASE EVENT DATE: 20160108
